FAERS Safety Report 20751671 (Version 1)
Quarter: 2022Q2

REPORT INFORMATION
  Report Type: Report from Study
  Country: FI (occurrence: FI)
  Receive Date: 20220426
  Receipt Date: 20220426
  Transmission Date: 20220721
  Serious: Yes (Other)
  Sender: FDA-Public Use
  Company Number: FI-MYLANLABS-2022M1029918

PATIENT
  Age: 28 Year
  Sex: Male

DRUGS (4)
  1. CLOZAPINE [Suspect]
     Active Substance: CLOZAPINE
     Indication: Schizophrenia
     Dosage: UNK
     Dates: start: 202105, end: 202111
  2. CLOZAPINE [Suspect]
     Active Substance: CLOZAPINE
     Dosage: 85 MILLIGRAM, QD,(25 MG+60 MG DAILY)
     Dates: start: 20220325
  3. ZYPREXA [Concomitant]
     Active Substance: OLANZAPINE
     Dosage: 20 MILLIGRAM, QD
  4. RISPERDAL [Concomitant]
     Active Substance: RISPERIDONE
     Dosage: 10 MILLIGRAM, QD

REACTIONS (5)
  - Neutropenia [Not Recovered/Not Resolved]
  - White blood cell count decreased [Unknown]
  - Adverse event [Unknown]
  - Off label use [Unknown]
  - Therapy cessation [Unknown]

NARRATIVE: CASE EVENT DATE: 20210101
